FAERS Safety Report 9289967 (Version 2)
Quarter: 2013Q2

REPORT INFORMATION
  Report Type: Spontaneous
  Country: US (occurrence: US)
  Receive Date: 20130515
  Receipt Date: 20130610
  Transmission Date: 20140414
  Serious: Yes (Other)
  Sender: FDA-Public Use
  Company Number: US-MERCK-1305USA006748

PATIENT
  Sex: Male

DRUGS (3)
  1. THERAPY UNSPECIFIED [Suspect]
     Dosage: 10 MG, UNK
  2. THERAPY UNSPECIFIED [Suspect]
     Dosage: 5 MG, UNK
  3. ABILIFY [Suspect]

REACTIONS (1)
  - Convulsion [Recovering/Resolving]
